FAERS Safety Report 15605461 (Version 2)
Quarter: 2018Q4

REPORT INFORMATION
  Report Type: Report from Study
  Country: DE (occurrence: DE)
  Receive Date: 20181112
  Receipt Date: 20181112
  Transmission Date: 20190205
  Serious: Yes (Other)
  Sender: FDA-Public Use
  Company Number: DE-TEVA-2018-DE-972523

PATIENT

DRUGS (1)
  1. DULOXETINE. [Suspect]
     Active Substance: DULOXETINE
     Route: 065

REACTIONS (2)
  - Cholestatic liver injury [Recovered/Resolved]
  - Drug-induced liver injury [Recovered/Resolved]
